FAERS Safety Report 6401530-3 (Version None)
Quarter: 2009Q4

REPORT INFORMATION
  Report Type: 
  Country: None (occurrence: None)
  Receive Date: 20091013
  Receipt Date: 20091013
  Transmission Date: 20100525
  Serious: No
  Sender: FDA-Public Use
  Company Number: None

PATIENT
  Sex: Female
  Weight: 67.1324 kg

DRUGS (2)
  1. METHOCARBAMOL [Suspect]
     Indication: MUSCLE STRAIN
     Dosage: 750MG 1-2 TID PRN PO
     Route: 048
     Dates: start: 20091005, end: 20091005
  2. METHOCARBAMOL [Suspect]
     Indication: NECK PAIN
     Dosage: 750MG 1-2 TID PRN PO
     Route: 048
     Dates: start: 20091005, end: 20091005

REACTIONS (3)
  - ABDOMINAL DISCOMFORT [None]
  - GLOSSODYNIA [None]
  - INSOMNIA [None]
